FAERS Safety Report 21338770 (Version 1)
Quarter: 2022Q3

REPORT INFORMATION
  Report Type: Report from Study
  Country: DE (occurrence: DE)
  Receive Date: 20220915
  Receipt Date: 20220915
  Transmission Date: 20221027
  Serious: Yes (Hospitalization)
  Sender: FDA-Public Use
  Company Number: None

PATIENT
  Age: 68 Year
  Sex: Female

DRUGS (32)
  1. SPIRONOLACTONE [Suspect]
     Active Substance: SPIRONOLACTONE
     Indication: Hyperuricaemia
     Dosage: FREQ:FREQUENCY: DAILY
     Route: 065
  2. SPIRONOLACTONE [Suspect]
     Active Substance: SPIRONOLACTONE
     Indication: Oedema
     Dosage: DOSAGE REPORTED AS 50MG 25MG , THERAPY END DATE : NASK
     Route: 065
     Dates: start: 20030724
  3. DIGITOXIN [Suspect]
     Active Substance: DIGITOXIN
     Indication: Tachyarrhythmia
     Dosage: DOSAGE REPORTED AS INJLSG 0.25MG 1-0-1 1-0-0 , UNIT DOSE : 0.25 MG , DURATION : 2 DAYS
     Dates: start: 20030722, end: 20030723
  4. HEPARIN [Suspect]
     Active Substance: HEPARIN SODIUM
     Indication: Thrombosis prophylaxis
     Dosage: DOSAGE REPORTED AS INJLSG 5000IE 25000IE , DURATION : 10 DAYS
     Dates: start: 20030721, end: 20030730
  5. PHENPROCOUMON [Suspect]
     Active Substance: PHENPROCOUMON
     Indication: Thrombosis prophylaxis
     Dosage: DOSAGE REPORTED AS N.INR , THERAPY END DATE : NASK
     Dates: start: 20030728
  6. HYDROCHLOROTHIAZIDE\RAMIPRIL [Suspect]
     Active Substance: HYDROCHLOROTHIAZIDE\RAMIPRIL
     Indication: Hypertonia
     Dosage: 2.5 MILLIGRAM DAILY; DOSAGE REPORTED AS 2,5MG 1-0-0  , THERAPY END DATE : NASK
     Dates: start: 20030722
  7. CORDAREX [Suspect]
     Active Substance: AMIODARONE
     Indication: Tachycardia
     Dosage: 200 MILLIGRAM DAILY; DOSAGE REPORTED AS 200 MG 1-0-0 ,  CORDAREX /00133102/
     Dates: start: 20030721, end: 20030721
  8. CORDAREX [Suspect]
     Active Substance: AMIODARONE
     Dosage: FREQUENCY: ONCE , CORDAREX /00133102/  , UNIT DOSE : 200 MG , DURATION : 2 DAY
     Dates: start: 20030721, end: 20030722
  9. POTASSIUM CHLORIDE [Suspect]
     Active Substance: POTASSIUM CHLORIDE
     Indication: Electrolyte substitution therapy
     Dosage: DOSAGE REPORTED AS BT 4/3/2 BRSTBL , DURATION : 3 DAYS
     Dates: start: 20030722, end: 20030724
  10. RAMIPRIL [Suspect]
     Active Substance: RAMIPRIL
     Indication: Hypertension
     Dosage: UNIT DOSE : 2.5MG
     Route: 065
  11. TORSEMIDE [Suspect]
     Active Substance: TORSEMIDE
     Indication: Oedema
     Dosage: THERAPY END DATE : NASK
     Route: 065
     Dates: start: 20030721
  12. TORSEMIDE [Suspect]
     Active Substance: TORSEMIDE
     Dosage: 90 MILLIGRAM DAILY; DAILY DOSE: 90 MG MILLIGRAM(S) EVERY DAY , DURATION : 25 DAYS
     Dates: start: 20030721, end: 20030814
  13. DIGITOXIN [Suspect]
     Active Substance: DIGITOXIN
     Indication: Oedema
     Route: 065
  14. DIGITOXIN [Suspect]
     Active Substance: DIGITOXIN
     Indication: Tachyarrhythmia
     Dosage: .1 MILLIGRAM DAILY; DOSAGE REPORTED AS 0.1MG 1-0-0 , THERAPY END DATE : NASK
     Route: 065
     Dates: start: 20030724
  15. DIGITOXIN [Suspect]
     Active Substance: DIGITOXIN
     Indication: Hypertension
  16. BISOPROLOL FUMARATE [Suspect]
     Active Substance: BISOPROLOL FUMARATE
     Indication: Oedema
     Dosage: TEXT:10 MG; 5MG , DURATION : 6 DAYS
     Dates: start: 20030722, end: 20030727
  17. BISOPROLOL FUMARATE [Suspect]
     Active Substance: BISOPROLOL FUMARATE
     Indication: Hypertonia
     Dosage: DOSAGE REPORTED AS 10MG 5MG , DURATION : 1 DAY
     Dates: start: 20030722, end: 20030722
  18. BISOPROLOL FUMARATE [Suspect]
     Active Substance: BISOPROLOL FUMARATE
     Indication: Hypertension
     Dosage: TEXT:10 MG; 5MG , CONCOR /00802602/ , UNIT DOSE : 10 MG , DURATION :  4 YEARS
     Dates: start: 20030722, end: 20070814
  19. AQUAPHOR [Suspect]
     Active Substance: PETROLATUM
     Indication: Oedema
     Dosage: AQUAPHOR /00298701/ , UNIT DOSE : 40 MG , DURATION : 10 DAYS
     Dates: start: 20030721, end: 20030730
  20. AQUAPHOR [Suspect]
     Active Substance: PETROLATUM
     Dosage: DOSAGE REPORTED AS 40MG 20MG 10MG , DURATION : 10 DAYS
     Dates: start: 20030721, end: 20030730
  21. AMPICILLIN SODIUM\SULBACTAM SODIUM [Suspect]
     Active Substance: AMPICILLIN SODIUM\SULBACTAM SODIUM
     Indication: Erysipelas
     Dosage: DOSAGE REPORTED AS INJLSG 3G 3X3G , UNIT DOSE : 9 GRAM , FREQUENCY TIME : 1 DAY  , DURATION : 8 DAY
     Dates: start: 20030721, end: 20030728
  22. AMPICILLIN SODIUM\SULBACTAM SODIUM [Suspect]
     Active Substance: AMPICILLIN SODIUM\SULBACTAM SODIUM
     Dosage: 9 GRAM DAILY; DAILY DOSE: 9 G GRAM(S) EVERY DAY , UNACID /00917901/ , DURATION : 8 DAY
     Dates: start: 20030721, end: 20030728
  23. CLOBUTINOL HYDROCHLORIDE [Suspect]
     Active Substance: CLOBUTINOL HYDROCHLORIDE
     Indication: Cough
     Dosage: DOSAGE REPORTED AS TROPFEN 20TR , UNIT DOSE : 20 GTT , DURATION : 2 DAYS
     Dates: start: 20030722, end: 20030723
  24. TEMAZEPAM [Suspect]
     Active Substance: TEMAZEPAM
     Indication: Sleep disorder
     Dosage: DOSE: 1 TABLET , PLANUM /00393701/ , DURATION : 4 DAYS
     Dates: start: 20030724, end: 20030727
  25. DESOGESTREL\ETHINYL ESTRADIOL [Suspect]
     Active Substance: DESOGESTREL\ETHINYL ESTRADIOL
     Indication: Insomnia
     Dosage: DOSAGE REPORTED AS 1TBL , UNIT DOSE : 1 DF  , FREQUENCY TIME : 1 DAY  , DURATION : 4 DAY
     Dates: start: 20030724, end: 20030727
  26. MARCUMAR [Suspect]
     Active Substance: PHENPROCOUMON
     Indication: Thrombosis prophylaxis
     Dosage: FREQUENCY: AS NEEDED , DURATION : 18 DAYS
     Dates: start: 20030728, end: 20030814
  27. ALLOPURINOL [Suspect]
     Active Substance: ALLOPURINOL
     Indication: Hyperuricaemia
     Dosage: 300 MILLIGRAM DAILY; DOSAGE REPORTED AS 300MG 0-0-1 , THERAPY END DATE : NASK
     Dates: start: 20030722
  28. VALERIAN TINCTURE [Concomitant]
     Indication: Agitation
     Dates: start: 20030721, end: 20030721
  29. BELOC [Concomitant]
     Indication: Hypertension
     Dosage: FREQUENCY: ONCE , BELOC /00376902/ , UNIT DOSE : 10 MG
     Dates: start: 20030721, end: 20030721
  30. SILOMAT [Concomitant]
     Indication: Cough
     Dosage: FREQUENCY: ONCE , SILOMAT /00096702/ , UNIT DOSE : 20 GTT , DURATION : 2 DAYS
     Dates: start: 20030722, end: 20030723
  31. VALERIAN [Concomitant]
     Active Substance: VALERIAN
     Indication: Agitation
     Dosage: DOSAGE REPORTED AS 1 TEASPOON
     Dates: start: 20030721, end: 20030721
  32. FUROSEMIDE [Concomitant]
     Active Substance: FUROSEMIDE
     Indication: Oedema
     Dosage: DOSAGE REPORTED AS INJLSG 40MG
     Dates: start: 20030721, end: 20030721

REACTIONS (5)
  - Stevens-Johnson syndrome [Recovered/Resolved]
  - Erythema [Recovered/Resolved]
  - Pruritus [Recovered/Resolved]
  - Blister [Recovered/Resolved]
  - Lip erosion [Recovered/Resolved]

NARRATIVE: CASE EVENT DATE: 20030804
